FAERS Safety Report 7158179-7 (Version None)
Quarter: 2010Q4

REPORT INFORMATION
  Report Type: 
  Country: None (occurrence: None)
  Receive Date: 20101214
  Receipt Date: 20100604
  Transmission Date: 20110411
  Serious: No
  Sender: FDA-Public Use
  Company Number: US-ASTRAZENECA-2010SE20791

PATIENT
  Age: 84 Year
  Sex: Male

DRUGS (4)
  1. CRESTOR [Suspect]
     Route: 048
     Dates: start: 20080101
  2. MARIPEX [Concomitant]
  3. LORAZEPAM [Concomitant]
  4. COENZYME Q10 [Concomitant]

REACTIONS (7)
  - BACK PAIN [None]
  - BLOOD CHOLESTEROL DECREASED [None]
  - INAPPROPRIATE SCHEDULE OF DRUG ADMINISTRATION [None]
  - MUSCLE ATROPHY [None]
  - MUSCULOSKELETAL PAIN [None]
  - OSTEOARTHRITIS [None]
  - PAIN IN EXTREMITY [None]
